FAERS Safety Report 8402869-2 (Version None)
Quarter: 2012Q2

REPORT INFORMATION
  Report Type: 
  Country: None (occurrence: None)
  Receive Date: 20120601
  Receipt Date: 20120530
  Transmission Date: 20120825
  Serious: Yes (Other)
  Sender: FDA-Public Use
  Company Number: CA-BAYER-2012-053819

PATIENT
  Age: 45 Year
  Sex: Female

DRUGS (8)
  1. AMITRIPTYLINE HCL [Concomitant]
  2. HYDROCHLOROTHIAZIDE [Concomitant]
  3. PANTOPRAZOLE [Concomitant]
  4. VITAMIN D [Concomitant]
  5. WELLBUTRIN [Concomitant]
  6. OXAZEPAM [Concomitant]
  7. BETASERON [Suspect]
     Indication: MULTIPLE SCLEROSIS
     Dosage: 0.25, MG
     Route: 058
     Dates: start: 19980801
  8. SYNTHROID [Concomitant]

REACTIONS (2)
  - SYNCOPE [None]
  - LIVEDO RETICULARIS [None]
